FAERS Safety Report 5725289-8 (Version None)
Quarter: 2008Q2

REPORT INFORMATION
  Report Type: 
  Country: None (occurrence: None)
  Receive Date: 20080429
  Receipt Date: 20080411
  Transmission Date: 20081010
  Serious: Yes (Life-Threatening, Hospitalization)
  Sender: FDA-Public Use
  Company Number: 2008PV000021

PATIENT
  Age: 53 Year
  Sex: Female

DRUGS (5)
  1. DEPOCYT (CYTARABINE) (50 MG) [Suspect]
     Indication: T-CELL LYMPHOMA
     Dosage: 50 MG; 1X; INTH
     Route: 037
     Dates: start: 20080327
  2. PACLITAXEL (PREV.) [Concomitant]
  3. CARBOPLATIN (PREV.) [Concomitant]
  4. METHOTREXATE (CON.) [Concomitant]
  5. DESMOPRESSIN (CON.) [Concomitant]

REACTIONS (9)
  - ARACHNOIDITIS [None]
  - DECEREBRATION [None]
  - DISEASE PROGRESSION [None]
  - GENERAL PHYSICAL HEALTH DETERIORATION [None]
  - HYPERAESTHESIA [None]
  - NEUROTOXICITY [None]
  - POSTURING [None]
  - PYREXIA [None]
  - SOMNOLENCE [None]
